FAERS Safety Report 7131483-4 (Version None)
Quarter: 2010Q4

REPORT INFORMATION
  Report Type: 
  Country: None (occurrence: None)
  Receive Date: 20101201
  Receipt Date: 20101125
  Transmission Date: 20110411
  Serious: Yes (Other)
  Sender: FDA-Public Use
  Company Number: BR-PFIZER INC-2010157905

PATIENT
  Age: 48 Year
  Sex: Male
  Weight: 95 kg

DRUGS (2)
  1. DOSTINEX [Suspect]
     Indication: BLOOD PROLACTIN ABNORMAL
     Dosage: 0.5 MG, SINGLE
     Route: 048
     Dates: start: 20101114, end: 20101114
  2. ACETYLSALICYLIC ACID [Concomitant]
     Indication: POOR PERIPHERAL CIRCULATION
     Dosage: 100 MG, UNK
     Dates: start: 20100101

REACTIONS (9)
  - DECREASED APPETITE [None]
  - DIZZINESS [None]
  - HEADACHE [None]
  - LOSS OF CONSCIOUSNESS [None]
  - SOMNOLENCE [None]
  - SWOLLEN TONGUE [None]
  - TONGUE BITING [None]
  - TONGUE ULCERATION [None]
  - URINARY INCONTINENCE [None]
